FAERS Safety Report 5273230-7 (Version None)
Quarter: 2007Q1

REPORT INFORMATION
  Report Type: 
  Country: None (occurrence: None)
  Receive Date: 20070322
  Receipt Date: 20070314
  Transmission Date: 20070707
  Serious: Yes (Hospitalization)
  Sender: FDA-Public Use
  Company Number: DE-MERCK-0308DEU00029B1

PATIENT
  Age: 0 Day
  Sex: Male
  Weight: 3 kg

DRUGS (19)
  1. FOSAMAX [Suspect]
     Indication: OSTEOPOROSIS
     Route: 064
     Dates: start: 20000101, end: 20010301
  2. FOSAMAX [Suspect]
     Route: 064
  3. FOSAMAX [Suspect]
     Route: 064
     Dates: start: 20030101, end: 20030701
  4. DEXAMETHASONE [Suspect]
     Indication: ASTHMA
     Route: 064
  5. MONTELUKAST SODIUM [Concomitant]
     Route: 064
  6. ALBUTEROL SULFATE [Concomitant]
     Route: 064
  7. IPRATROPIUM BROMIDE [Concomitant]
     Route: 064
  8. FLUTICASONE PROPIONATE [Concomitant]
     Route: 064
  9. FORMOTEROL FUMARATE [Concomitant]
     Route: 064
  10. THEOPHYLLINE [Concomitant]
     Route: 064
  11. TERBUTALINE SULFATE [Concomitant]
     Route: 064
  12. FUROSEMIDE [Concomitant]
     Route: 064
  13. TORSEMIDE [Concomitant]
     Route: 064
  14. GLOBULIN, IMMUNE [Concomitant]
     Route: 064
  15. INTERFERON (UNSPECIFIED) [Concomitant]
     Route: 064
  16. RIBAVIRIN [Concomitant]
     Route: 064
  17. PREDNISOLONE [Concomitant]
     Route: 064
     Dates: end: 20000101
  18. PREDNISOLONE [Concomitant]
     Route: 064
     Dates: start: 20000101, end: 20000701
  19. PREDNISOLONE [Concomitant]
     Route: 064
     Dates: start: 20070301

REACTIONS (5)
  - BLOOD CORTISOL DECREASED [None]
  - HAEMANGIOMA OF SKIN [None]
  - HYPOCALCAEMIA [None]
  - PREMATURE BABY [None]
  - TRANSIENT TACHYPNOEA OF THE NEWBORN [None]
